FAERS Safety Report 4319790-1 (Version None)
Quarter: 2004Q1

REPORT INFORMATION
  Report Type: 
  Country: None (occurrence: None)
  Receive Date: 20040316
  Receipt Date: 20040302
  Transmission Date: 20041129
  Serious: Yes (Other)
  Sender: FDA-Public Use
  Company Number: K200400295

PATIENT
  Age: 55 Year
  Sex: Female
  Weight: 44.4 kg

DRUGS (4)
  1. DELESTROGEN [Suspect]
     Indication: MENOPAUSE
     Dosage: 20 MG/ML,QMON, INTRAMUSCULAR
     Route: 030
     Dates: start: 19870101
  2. DIOVAN ^CIBA-GEIGY^ (VALSARTAN) [Concomitant]
  3. LORTAB [Concomitant]
  4. XANAX [Concomitant]

REACTIONS (25)
  - ACNE [None]
  - ANXIETY [None]
  - ASTHMA [None]
  - BLOOD CORTISOL INCREASED [None]
  - BLOOD PRESSURE DECREASED [None]
  - CARDIAC ARREST [None]
  - DEPRESSED MOOD [None]
  - DRUG INEFFECTIVE [None]
  - FEELING COLD [None]
  - FLUSHING [None]
  - HALLUCINATION [None]
  - HEART RATE DECREASED [None]
  - HIRSUTISM [None]
  - HYPERSENSITIVITY [None]
  - HYPERTENSION [None]
  - HYPOGLYCAEMIA [None]
  - LIBIDO DECREASED [None]
  - MENOPAUSAL SYMPTOMS [None]
  - MOOD SWINGS [None]
  - PHARMACEUTICAL PRODUCT COMPLAINT [None]
  - SCHIZOPHRENIA [None]
  - TREMOR [None]
  - VENTRICULAR TACHYCARDIA [None]
  - WEIGHT DECREASED [None]
  - WEIGHT INCREASED [None]
